FAERS Safety Report 5428571-7 (Version None)
Quarter: 2007Q3

REPORT INFORMATION
  Report Type: 
  Country: None (occurrence: None)
  Receive Date: 20070731
  Receipt Date: 20070409
  Transmission Date: 20080115
  Serious: No
  Sender: FDA-Public Use
  Company Number: US200704002063

PATIENT
  Age: 64 Year
  Sex: Male
  Weight: 158.7 kg

DRUGS (7)
  1. BYETTA [Suspect]
     Indication: TYPE 2 DIABETES MELLITUS
     Dosage: 5 UG, 2/D, SUBCU ;
     Route: 058
     Dates: start: 20060401, end: 20060501
  2. EXENATIDE 5MCG PEN, DISPOSABLE DEVICE [Concomitant]
  3. LANTUS         (GLARGINE) [Concomitant]
  4. GLUCOPHAGE [Concomitant]
  5. NPH PURIFIED PORK ISOPHANE INSULIN [Concomitant]
  6. ACTOS                     (PIAGLITAZONE HYDROCHLORIDE) [Concomitant]
  7. BYETTA [Suspect]
     Indication: TYPE 2 DIABETES MELLITUS
     Dosage: 10 UG 2/D
     Route: 058
     Dates: start: 20060501

REACTIONS (2)
  - BLOOD GLUCOSE INCREASED [None]
  - WEIGHT DECREASED [None]
